FAERS Safety Report 5167369-4 (Version None)
Quarter: 2006Q4

REPORT INFORMATION
  Report Type: 
  Country: None (occurrence: None)
  Receive Date: 20061130
  Receipt Date: 20061120
  Transmission Date: 20070319
  Serious: Yes (Hospitalization, Other)
  Sender: FDA-Public Use
  Company Number: 2006144189

PATIENT
  Age: 29 Year
  Sex: Female
  Weight: 110 kg

DRUGS (4)
  1. LYRICA [Suspect]
     Indication: PARTIAL SEIZURES
     Dosage: 200 MG (100 MG, 2 IN 1 D), ORAL
     Route: 048
     Dates: start: 20050701, end: 20060101
  2. LAMICTAL [Concomitant]
  3. NEURONTIN [Concomitant]
  4. CLONAZEPAM [Concomitant]

REACTIONS (2)
  - BREAST HYPERPLASIA [None]
  - FIBROCYSTIC BREAST DISEASE [None]
